FAERS Safety Report 17680609 (Version 2)
Quarter: 2020Q2

REPORT INFORMATION
  Report Type: Spontaneous
  Country: SE (occurrence: SE)
  Receive Date: 20200417
  Receipt Date: 20200504
  Transmission Date: 20200714
  Serious: Yes (Disabling)
  Sender: FDA-Public Use
  Company Number: SE-MYLANLABS-2020M1038956

PATIENT
  Age: 72 Year
  Sex: Male
  Weight: 90 kg

DRUGS (1)
  1. ZOLEDRONIC ACID [Suspect]
     Active Substance: ZOLEDRONIC ACID
     Indication: OSTEOPOROSIS
     Dosage: 5 MILLIGRAM, 4 MG/5 ML
     Route: 042
     Dates: start: 20200212, end: 20200212

REACTIONS (10)
  - C-reactive protein abnormal [Recovering/Resolving]
  - Arthralgia [Recovering/Resolving]
  - Joint swelling [Recovering/Resolving]
  - Fatigue [Recovering/Resolving]
  - Pyrexia [Recovered/Resolved]
  - Testicular pain [Recovered/Resolved]
  - Nausea [Recovering/Resolving]
  - Testicular swelling [Recovered/Resolved]
  - Blood pressure decreased [Recovering/Resolving]
  - Dizziness [Recovering/Resolving]

NARRATIVE: CASE EVENT DATE: 202002
